FAERS Safety Report 7813078-X (Version None)
Quarter: 2011Q4

REPORT INFORMATION
  Report Type: 
  Country: None (occurrence: None)
  Receive Date: 20111013
  Receipt Date: 20111007
  Transmission Date: 20120403
  Serious: Yes (Hospitalization, Other)
  Sender: FDA-Public Use
  Company Number: PHEH2011US06432

PATIENT
  Sex: Female

DRUGS (9)
  1. LORAZEPAM [Concomitant]
     Dosage: UNK UKN, UNK
  2. ZOLPIDEM [Concomitant]
     Dosage: UNK UKN, UNK
  3. MICARDIS [Concomitant]
     Dosage: UNK UKN, UNK
  4. CRESTOR [Concomitant]
     Dosage: UNK UKN, UNK
  5. GILENYA [Suspect]
     Indication: MULTIPLE SCLEROSIS
     Dosage: 0.5 MG, DAILY
     Route: 048
     Dates: start: 20110223
  6. SPIRIVA [Concomitant]
     Dosage: UNK UKN, UNK
  7. OMEPRAZOLE [Concomitant]
     Dosage: UNK UKN, UNK
  8. LEVOTHYROXINE SODIUM [Concomitant]
     Dosage: UNK UKN, UNK
  9. MECLIZINE [Concomitant]
     Dosage: UNK UKN, UNK

REACTIONS (2)
  - HYPERTENSION [None]
  - CARDIAC FAILURE CONGESTIVE [None]
